FAERS Safety Report 17067582 (Version 1)
Quarter: 2019Q4

REPORT INFORMATION
  Report Type: Spontaneous
  Country: US (occurrence: US)
  Receive Date: 20191122
  Receipt Date: 20191122
  Transmission Date: 20200122
  Serious: No
  Sender: FDA-Public Use
  Company Number: NVSC2019US043248

PATIENT
  Sex: Female

DRUGS (1)
  1. PREDNISOLONE ACETATE. [Suspect]
     Active Substance: PREDNISOLONE ACETATE
     Indication: HERPES ZOSTER
     Dosage: UNK( 5 ML)
     Route: 065

REACTIONS (2)
  - Ocular hyperaemia [Unknown]
  - Liquid product physical issue [Unknown]
